FAERS Safety Report 8429333-9 (Version None)
Quarter: 2012Q2

REPORT INFORMATION
  Report Type: 
  Country: None (occurrence: None)
  Receive Date: 20120612
  Receipt Date: 20120606
  Transmission Date: 20120825
  Serious: Yes (Hospitalization, Other)
  Sender: FDA-Public Use
  Company Number: US-BAYER-2012-056157

PATIENT
  Age: 64 Year
  Sex: Female

DRUGS (5)
  1. PREDNISONE [Concomitant]
     Indication: ARTHRITIS
  2. ANTITHROMBOTIC AGENTS [Concomitant]
     Indication: PRODUCT USED FOR UNKNOWN INDICATION
  3. COUMADIN [Concomitant]
     Indication: PRODUCT USED FOR UNKNOWN INDICATION
  4. BETASERON [Suspect]
     Dosage: 8 MIU, QOD
     Route: 058
     Dates: start: 20120222, end: 20120605
  5. BETASERON [Suspect]
     Indication: RELAPSING-REMITTING MULTIPLE SCLEROSIS
     Dosage: UNK
     Dates: start: 20051014, end: 20060227

REACTIONS (5)
  - PULMONARY THROMBOSIS [None]
  - DIABETES MELLITUS [None]
  - PULMONARY HYPERTENSION [None]
  - SWELLING FACE [None]
  - WEIGHT INCREASED [None]
